FAERS Safety Report 18494265 (Version 1)
Quarter: 2020Q4

REPORT INFORMATION
  Report Type: Report from Study
  Country: None (occurrence: US)
  Receive Date: 20201111
  Receipt Date: 20201111
  Transmission Date: 20210114
  Serious: Yes (Other)
  Sender: FDA-Public Use
  Company Number: US-ABBVIE-20K-163-3643561-00

PATIENT
  Sex: Female

DRUGS (1)
  1. HUMIRA [Suspect]
     Active Substance: ADALIMUMAB
     Indication: PRODUCT USED FOR UNKNOWN INDICATION
     Route: 058

REACTIONS (6)
  - Meniscus injury [Not Recovered/Not Resolved]
  - Arthritis [Unknown]
  - Ligament rupture [Not Recovered/Not Resolved]
  - Intentional product misuse [Unknown]
  - Mobility decreased [Unknown]
  - Scar [Unknown]

NARRATIVE: CASE EVENT DATE: 2020
